FAERS Safety Report 15016084 (Version 1)
Quarter: 2018Q2

REPORT INFORMATION
  Report Type: Report from Study
  Country: US (occurrence: US)
  Receive Date: 20180615
  Receipt Date: 20180615
  Transmission Date: 20180711
  Serious: Yes (Other)
  Sender: FDA-Public Use
  Company Number: US-TEVA-2018-US-909603

PATIENT
  Age: 25 Year
  Sex: Female

DRUGS (1)
  1. COPAXONE [Suspect]
     Active Substance: GLATIRAMER ACETATE
     Indication: MULTIPLE SCLEROSIS
     Dosage: DOSE STRENGTH: 40
     Route: 058
     Dates: start: 20180310, end: 20180427

REACTIONS (9)
  - Dysphagia [Unknown]
  - Chills [Unknown]
  - Swelling [Unknown]
  - Hypersensitivity [Unknown]
  - Flushing [Unknown]
  - Pyrexia [Unknown]
  - Vomiting projectile [Unknown]
  - Swelling face [Unknown]
  - Dyspnoea [Unknown]

NARRATIVE: CASE EVENT DATE: 20180427
